FAERS Safety Report 16885196 (Version 1)
Quarter: 2019Q4

REPORT INFORMATION
  Report Type: Spontaneous
  Country: US (occurrence: US)
  Receive Date: 20190809
  Receipt Date: 20190809
  Transmission Date: 20200122
  Serious: Yes (Hospitalization)
  Sender: FDA-Public Use
  Company Number: None

PATIENT
  Age: 37 Year
  Sex: Female

DRUGS (12)
  1. HUMIRA [Suspect]
     Active Substance: ADALIMUMAB
     Indication: COLITIS ULCERATIVE
     Route: 058
  2. OMEPRAZOLE. [Concomitant]
     Active Substance: OMEPRAZOLE
  3. VITAMIN D [Concomitant]
     Active Substance: VITAMIN D NOS
  4. ATORVASTATIN [Concomitant]
     Active Substance: ATORVASTATIN
  5. ZOFRAN [Concomitant]
     Active Substance: ONDANSETRON HYDROCHLORIDE
  6. PERCOCET [Concomitant]
     Active Substance: ACETAMINOPHEN\OXYCODONE HYDROCHLORIDE
  7. BUDESONIDE. [Concomitant]
     Active Substance: BUDESONIDE
  8. LEVOFLOXACIN. [Concomitant]
     Active Substance: LEVOFLOXACIN
  9. LISINOPRIL. [Concomitant]
     Active Substance: LISINOPRIL
  10. XANAX [Concomitant]
     Active Substance: ALPRAZOLAM
  11. NOVOLOG [Concomitant]
     Active Substance: INSULIN ASPART
  12. AMITRIPTLIN [Concomitant]

REACTIONS (3)
  - Diarrhoea [None]
  - Abdominal pain [None]
  - Infection [None]

NARRATIVE: CASE EVENT DATE: 20190310
